FAERS Safety Report 16977677 (Version 1)
Quarter: 2019Q4

REPORT INFORMATION
  Report Type: Spontaneous
  Country: CA (occurrence: CA)
  Receive Date: 20191031
  Receipt Date: 20191031
  Transmission Date: 20200122
  Serious: Yes (Other)
  Sender: FDA-Public Use
  Company Number: CA-TEVA-2019-CA-1128147

PATIENT
  Age: 69 Year
  Sex: Male
  Weight: 68 kg

DRUGS (5)
  1. CARBAMAZEPINE. [Suspect]
     Active Substance: CARBAMAZEPINE
     Indication: GENERALISED TONIC-CLONIC SEIZURE
     Dosage: 1200 MILLIGRAM DAILY;
     Route: 048
  2. EZETROL [Concomitant]
     Active Substance: EZETIMIBE
  3. CRESTOR - 20MG [Concomitant]
  4. TECTA [Concomitant]
     Active Substance: PANTOPRAZOLE MAGNESIUM
  5. CLOBAZAM. [Concomitant]
     Active Substance: CLOBAZAM

REACTIONS (3)
  - Seizure [Unknown]
  - Anticonvulsant drug level abnormal [Unknown]
  - Product substitution issue [Unknown]
